FAERS Safety Report 5095442-8 (Version None)
Quarter: 2006Q3

REPORT INFORMATION
  Report Type: 
  Country: None (occurrence: None)
  Receive Date: 20060731
  Receipt Date: 20060719
  Transmission Date: 20061208
  Serious: No
  Sender: FDA-Public Use
  Company Number: 2006PV012508

PATIENT
  Age: 60 Year
  Sex: Female
  Weight: 90.2658 kg

DRUGS (7)
  1. BYETTA [Suspect]
     Indication: DIABETES MELLITUS NON-INSULIN-DEPENDENT
     Dosage: SEE IMAGE
     Route: 058
     Dates: start: 20060424, end: 20060101
  2. BYETTA [Suspect]
     Indication: DIABETES MELLITUS NON-INSULIN-DEPENDENT
     Dosage: SEE IMAGE
     Route: 058
     Dates: start: 20060307, end: 20060405
  3. BYETTA [Suspect]
     Indication: DIABETES MELLITUS NON-INSULIN-DEPENDENT
     Dosage: SEE IMAGE
     Route: 058
     Dates: start: 20060406, end: 20060423
  4. GLUCOTROL XL [Concomitant]
  5. GLUCOPHAGE XR [Concomitant]
  6. AVANDIA [Concomitant]
  7. PREVACID [Concomitant]

REACTIONS (10)
  - ACTIVITIES OF DAILY LIVING IMPAIRED [None]
  - BLOOD GLUCOSE DECREASED [None]
  - BLOOD GLUCOSE INCREASED [None]
  - ERUCTATION [None]
  - FEELING ABNORMAL [None]
  - HYPERHIDROSIS [None]
  - MENTAL IMPAIRMENT [None]
  - NASAL CONGESTION [None]
  - NAUSEA [None]
  - PERIPHERAL COLDNESS [None]
